FAERS Safety Report 10678548 (Version 2)
Quarter: 2015Q1

REPORT INFORMATION
  Report Type: Spontaneous
  Country: BE (occurrence: BE)
  Receive Date: 20141229
  Receipt Date: 20150122
  Transmission Date: 20150720
  Serious: Yes (Death, Hospitalization)
  Sender: FDA-Public Use
  Company Number: BE-PFIZER INC-2014355116

PATIENT
  Age: 33 Year
  Sex: Female
  Weight: 42 kg

DRUGS (3)
  1. XALKORI [Suspect]
     Active Substance: CRIZOTINIB
     Indication: NON-SMALL CELL LUNG CANCER
     Dosage: 250 MG, 2X/DAY
     Route: 048
     Dates: start: 20141127, end: 20141201
  2. DUROGESIC [Concomitant]
     Active Substance: FENTANYL
     Dosage: 900 ?G (37.5 ?G/HRS), DAILY
     Route: 062
  3. PANTOMED [Concomitant]
     Active Substance: DEXPANTHENOL
     Dosage: 40 MG, UNK
     Route: 048

REACTIONS (2)
  - Gastrointestinal ischaemia [Fatal]
  - Gastrointestinal necrosis [Fatal]

NARRATIVE: CASE EVENT DATE: 201412
